FAERS Safety Report 12342467 (Version 2)
Quarter: 2016Q2

REPORT INFORMATION
  Report Type: Spontaneous
  Country: US (occurrence: US)
  Receive Date: 20160506
  Receipt Date: 20160511
  Transmission Date: 20160815
  Serious: Yes (Hospitalization, Other)
  Sender: FDA-Public Use
  Company Number: US-009507513-1203USA02320

PATIENT
  Sex: Female
  Weight: 56.69 kg

DRUGS (2)
  1. ALENDRONATE SODIUM. [Suspect]
     Active Substance: ALENDRONATE SODIUM
     Indication: PRODUCT USED FOR UNKNOWN INDICATION
     Dosage: UNK
     Route: 048
     Dates: start: 2001, end: 20100106
  2. FOSAMAX [Suspect]
     Active Substance: ALENDRONATE SODIUM
     Indication: OSTEOPOROSIS
     Dosage: 70 MG/75ML, QW
     Route: 048
     Dates: start: 2000, end: 20100106

REACTIONS (17)
  - Intervertebral disc disorder [Unknown]
  - Respiratory tract infection [Recovering/Resolving]
  - Coronary artery disease [Unknown]
  - Abdominal discomfort [Unknown]
  - Back pain [Unknown]
  - Urinary tract infection [Recovered/Resolved]
  - Femur fracture [Unknown]
  - Angiopathy [Unknown]
  - Gastrooesophageal reflux disease [Unknown]
  - Osteoarthritis [Unknown]
  - Abdominal discomfort [Unknown]
  - Thrombocytopenia [Recovered/Resolved]
  - Hyperlipidaemia [Unknown]
  - Drug administration error [Unknown]
  - Hypertension [Unknown]
  - Nausea [Unknown]
  - Low turnover osteopathy [Unknown]

NARRATIVE: CASE EVENT DATE: 2001
